FAERS Safety Report 5640467-4 (Version None)
Quarter: 2008Q1

REPORT INFORMATION
  Report Type: 
  Country: None (occurrence: None)
  Receive Date: 20080227
  Receipt Date: 20080219
  Transmission Date: 20080703
  Serious: Yes (Other)
  Sender: FDA-Public Use
  Company Number: CO-JNJFOC-20080204483

PATIENT
  Age: 46 Year
  Sex: Male
  Weight: 66 kg

DRUGS (3)
  1. REMICADE [Suspect]
     Indication: RHEUMATOID ARTHRITIS
     Route: 042
  2. METHOTREXATE [Concomitant]
  3. PREDNISILONE [Concomitant]

REACTIONS (6)
  - CHILLS [None]
  - CONJUNCTIVAL HYPERAEMIA [None]
  - HYPERHIDROSIS [None]
  - INFUSION RELATED REACTION [None]
  - RASH [None]
  - TACHYCARDIA [None]
